FAERS Safety Report 7755108-X (Version None)
Quarter: 2011Q3

REPORT INFORMATION
  Report Type: 
  Country: None (occurrence: None)
  Receive Date: 20110916
  Receipt Date: 20110912
  Transmission Date: 20111222
  Serious: Yes (Other)
  Sender: FDA-Public Use
  Company Number: US-PFIZER INC-2011215274

PATIENT
  Sex: Male
  Weight: 68.027 kg

DRUGS (4)
  1. TOVIAZ [Suspect]
     Indication: POLLAKIURIA
     Dosage: 8 MG, DAILY
     Route: 048
     Dates: start: 20110826, end: 20110911
  2. LIPITOR [Concomitant]
     Indication: CARDIAC DISORDER
     Dosage: 10 MG, DAILY
  3. LASIX [Concomitant]
     Indication: PULMONARY OEDEMA
     Dosage: 40 MG, DAILY
  4. COUMADIN [Concomitant]
     Indication: CARDIAC DISORDER
     Dosage: UNK, DAILY

REACTIONS (4)
  - CONSTIPATION [None]
  - DYSURIA [None]
  - MALAISE [None]
  - DRY MOUTH [None]
